FAERS Safety Report 6786942-0 (Version None)
Quarter: 2010Q2

REPORT INFORMATION
  Report Type: 
  Country: None (occurrence: None)
  Receive Date: 20100623
  Receipt Date: 20100615
  Transmission Date: 20101027
  Serious: Yes (Other)
  Sender: FDA-Public Use
  Company Number: FR-AMGEN-QUU418399

PATIENT
  Age: 78 Year
  Sex: Female

DRUGS (3)
  1. NPLATE [Suspect]
     Indication: IDIOPATHIC THROMBOCYTOPENIC PURPURA
     Dates: start: 20100305
  2. IMMU-G [Concomitant]
     Dates: start: 20100301, end: 20100308
  3. CORTICOSTEROIDS [Concomitant]
     Dates: start: 20100301, end: 20100308

REACTIONS (2)
  - MUCOSAL HAEMORRHAGE [None]
  - PLATELET COUNT DECREASED [None]
